FAERS Safety Report 14387692 (Version 2)
Quarter: 2019Q3

REPORT INFORMATION
  Report Type: Spontaneous
  Country: US (occurrence: US)
  Receive Date: 20180115
  Receipt Date: 20190911
  Transmission Date: 20191004
  Serious: Yes (Other)
  Sender: FDA-Public Use
  Company Number: US-SA-2017SA183258

PATIENT
  Age: 56 Year
  Sex: Female
  Weight: 74.84 kg

DRUGS (14)
  1. OXYCODONE [Concomitant]
     Active Substance: OXYCODONE
  2. ZOFRAN [Concomitant]
     Active Substance: ONDANSETRON HYDROCHLORIDE
  3. TAXOTERE [Suspect]
     Active Substance: DOCETAXEL
     Indication: BREAST CANCER FEMALE
     Dosage: 154 MG,QCY
     Route: 042
     Dates: start: 20140103, end: 20140103
  4. TRASTUZUMAB. [Concomitant]
     Active Substance: TRASTUZUMAB
     Indication: BREAST CANCER FEMALE
     Dosage: 154 MG, QCY
     Dates: start: 20140103, end: 20140103
  5. PERJETA [Concomitant]
     Active Substance: PERTUZUMAB
  6. PERTUZUMAB. [Concomitant]
     Active Substance: PERTUZUMAB
     Dosage: 154 MG, QCY
     Dates: start: 20140602, end: 20140602
  7. TAXOL [Concomitant]
     Active Substance: PACLITAXEL
     Indication: BREAST CANCER FEMALE
     Dosage: 154 MG, QCY
     Dates: start: 20140103, end: 20140103
  8. TAXOL [Concomitant]
     Active Substance: PACLITAXEL
     Dosage: 154 MG, QCY
     Dates: start: 20140602, end: 20140602
  9. PROCHLORPERAZINE. [Concomitant]
     Active Substance: PROCHLORPERAZINE
  10. NAPROXEN. [Concomitant]
     Active Substance: NAPROXEN
  11. DECADRON [Concomitant]
     Active Substance: DEXAMETHASONE
  12. TAXOTERE [Suspect]
     Active Substance: DOCETAXEL
     Dosage: 154 MG,QCY
     Route: 042
     Dates: start: 20140602, end: 20140602
  13. PERTUZUMAB. [Concomitant]
     Active Substance: PERTUZUMAB
     Indication: BREAST CANCER FEMALE
     Dosage: 154 MG, QCY
     Dates: start: 20140103, end: 20140103
  14. TRASTUZUMAB. [Concomitant]
     Active Substance: TRASTUZUMAB
     Dosage: 154 MG, QCY
     Dates: start: 20140602, end: 20140602

REACTIONS (2)
  - Psychological trauma [Unknown]
  - Alopecia [Recovering/Resolving]

NARRATIVE: CASE EVENT DATE: 201401
